FAERS Safety Report 9814650 (Version 3)
Quarter: 2014Q2

REPORT INFORMATION
  Report Type: Spontaneous
  Country: US (occurrence: US)
  Receive Date: 20140113
  Receipt Date: 20140430
  Transmission Date: 20141212
  Serious: Yes (Hospitalization)
  Sender: FDA-Public Use
  Company Number: US-B.I. PHARMACEUTICALS,INC./RIDGEFIELD-2014-BI-01020BP

PATIENT
  Sex: Female
  Weight: 52.16 kg

DRUGS (5)
  1. PRADAXA [Suspect]
     Indication: ATRIAL FIBRILLATION
     Dosage: 300 MG
     Route: 065
     Dates: start: 20110127, end: 20120507
  2. MULTIVITAMIN [Concomitant]
     Route: 065
  3. BYSTOLIC [Concomitant]
     Indication: ESSENTIAL HYPERTENSION
     Dosage: 2.5 MG
     Route: 065
  4. SIMVASTATIN [Concomitant]
     Indication: HYPERLIPIDAEMIA
     Dosage: 40 MG
     Route: 065
  5. OMEPRAZOLE [Concomitant]
     Dosage: 40 MG
     Route: 065

REACTIONS (2)
  - Gastrointestinal haemorrhage [Unknown]
  - Anaemia [Unknown]
